FAERS Safety Report 6719768-4 (Version None)
Quarter: 2010Q2

REPORT INFORMATION
  Report Type: 
  Country: None (occurrence: None)
  Receive Date: 20100511
  Receipt Date: 20100430
  Transmission Date: 20101027
  Serious: Yes (Hospitalization)
  Sender: FDA-Public Use
  Company Number: A0858680A

PATIENT
  Sex: Male
  Weight: 120.5 kg

DRUGS (9)
  1. AVANDIA [Suspect]
     Dosage: 8MG IN THE MORNING
     Route: 048
  2. ASPIRIN [Concomitant]
  3. LISINOPRIL [Concomitant]
  4. LOVASTATIN [Concomitant]
  5. GEMFIBROZIL [Concomitant]
  6. GLYBURIDE [Concomitant]
  7. METFORMIN HYDROCHLORIDE [Concomitant]
  8. TRAMADOL HCL [Concomitant]
  9. LORATADINE [Concomitant]

REACTIONS (3)
  - ATRIOVENTRICULAR BLOCK [None]
  - CARDIAC PACEMAKER INSERTION [None]
  - CORONARY ARTERY DISEASE [None]
